FAERS Safety Report 22305402 (Version 1)
Quarter: 2023Q2

REPORT INFORMATION
  Report Type: Spontaneous
  Country: IQ (occurrence: None)
  Receive Date: 20230510
  Receipt Date: 20230510
  Transmission Date: 20230721
  Serious: Yes (Hospitalization, Other)
  Sender: FDA-Public Use
  Company Number: 2023A106896

PATIENT

DRUGS (1)
  1. BRILINTA [Suspect]
     Active Substance: TICAGRELOR
     Indication: Stent placement
     Dosage: 90.0MG AS REQUIRED
     Route: 048
     Dates: start: 20230504, end: 20230505

REACTIONS (2)
  - Shock [Unknown]
  - Bradycardia [Unknown]

NARRATIVE: CASE EVENT DATE: 20230501
